FAERS Safety Report 10511000 (Version 3)
Quarter: 2017Q3

REPORT INFORMATION
  Report Type: Spontaneous
  Country: US (occurrence: US)
  Receive Date: 20141010
  Receipt Date: 20170818
  Transmission Date: 20171127
  Serious: No
  Sender: FDA-Public Use
  Company Number: US-PFIZER INC-2014276455

PATIENT
  Age: 12 Year
  Sex: Male

DRUGS (2)
  1. GENOTROPIN [Suspect]
     Active Substance: SOMATROPIN
     Dosage: UNK, CYCLIC (2.6 DAILY, 6 DAYS PER WEEK)
     Dates: start: 20140825
  2. GENOTROPIN [Suspect]
     Active Substance: SOMATROPIN
     Dosage: 2.8 MG, DAILY (6 DAYS)
     Route: 058
     Dates: start: 20140916

REACTIONS (2)
  - Pain in extremity [Recovered/Resolved]
  - Limb discomfort [Unknown]
